FAERS Safety Report 14589208 (Version 3)
Quarter: 2018Q4

REPORT INFORMATION
  Report Type: Spontaneous
  Country: DE (occurrence: DE)
  Receive Date: 20180301
  Receipt Date: 20181102
  Transmission Date: 20190204
  Serious: Yes (Hospitalization, Other)
  Sender: FDA-Public Use
  Company Number: PHHY2018DE009257

PATIENT
  Age: 58 Year
  Sex: Male
  Weight: 75 kg

DRUGS (5)
  1. TAMSULOSINE [Concomitant]
     Active Substance: TAMSULOSIN HYDROCHLORIDE
     Indication: BENIGN PROSTATIC HYPERPLASIA
     Dosage: 0.4 MG, QD
     Route: 048
  2. GILENYA [Suspect]
     Active Substance: FINGOLIMOD HYDROCHLORIDE
     Indication: MULTIPLE SCLEROSIS RELAPSE
     Dosage: 0.5 MG, QD
     Route: 048
     Dates: start: 201312, end: 20171201
  3. SIMVASTATIN. [Concomitant]
     Active Substance: SIMVASTATIN
     Indication: HYPERCHOLESTEROLAEMIA
     Dosage: 20 MG, QD
     Route: 048
     Dates: start: 2015
  4. CANDESARTAN. [Concomitant]
     Active Substance: CANDESARTAN
     Indication: HYPERTENSION
     Dosage: 8 MG, QD
     Route: 048
     Dates: start: 2015
  5. AUBAGIO [Concomitant]
     Active Substance: TERIFLUNOMIDE
     Indication: RELAPSING-REMITTING MULTIPLE SCLEROSIS
     Dosage: UNK
     Route: 065
     Dates: start: 201806

REACTIONS (6)
  - Pain [Recovering/Resolving]
  - Cerebral disorder [Unknown]
  - Immune reconstitution inflammatory syndrome [Unknown]
  - Cognitive disorder [Recovering/Resolving]
  - Progressive multifocal leukoencephalopathy [Unknown]
  - Facial neuralgia [Recovering/Resolving]

NARRATIVE: CASE EVENT DATE: 201711
